FAERS Safety Report 6424388-5 (Version None)
Quarter: 2009Q4

REPORT INFORMATION
  Report Type: 
  Country: None (occurrence: None)
  Receive Date: 20091103
  Receipt Date: 20091023
  Transmission Date: 20100525
  Serious: Yes (Hospitalization)
  Sender: FDA-Public Use
  Company Number: PL-BAXTER-2009BH016500

PATIENT
  Age: 14 Year
  Sex: Male
  Weight: 58 kg

DRUGS (1)
  1. ADVATE [Suspect]
     Indication: HAEMOPHILIA
     Route: 065
     Dates: start: 20091022, end: 20091022

REACTIONS (1)
  - INVESTIGATION [None]
